FAERS Safety Report 17765621 (Version 1)
Quarter: 2020Q2

REPORT INFORMATION
  Report Type: Spontaneous
  Country: US (occurrence: US)
  Receive Date: 20200510
  Receipt Date: 20200510
  Transmission Date: 20200714
  Serious: Yes (Other)
  Sender: FDA-Public Use
  Company Number: None

PATIENT
  Age: 34 Year
  Sex: Male
  Weight: 69.75 kg

DRUGS (1)
  1. TRIUMEQ [Suspect]
     Active Substance: ABACAVIR SULFATE\DOLUTEGRAVIR SODIUM\LAMIVUDINE
     Indication: HIV INFECTION
     Dosage: ?          QUANTITY:30 TABLET(S);?
     Route: 048

REACTIONS (4)
  - Near death experience [None]
  - Therapy interrupted [None]
  - CD4 lymphocytes decreased [None]
  - Inability to afford medication [None]

NARRATIVE: CASE EVENT DATE: 20180701
